FAERS Safety Report 7769081-1 (Version None)
Quarter: 2011Q3

REPORT INFORMATION
  Report Type: 
  Country: None (occurrence: None)
  Receive Date: 20110922
  Receipt Date: 20100115
  Transmission Date: 20111222
  Serious: No
  Sender: FDA-Public Use
  Company Number: US-ASTRAZENECA-2009SE19301

PATIENT
  Age: 12566 Day
  Sex: Female
  Weight: 106.6 kg

DRUGS (16)
  1. CYCLOPHOSPHAMIDE [Concomitant]
     Dates: start: 20030512
  2. AVELOX [Concomitant]
     Dates: start: 20050210
  3. MOBIC [Concomitant]
     Dates: start: 20030924
  4. PROZAC [Concomitant]
  5. HYDROCODONE BITARTRATE AND ACETAMINOPHEN [Concomitant]
     Dosage: 5/500
     Dates: start: 20030512
  6. SEROQUEL [Suspect]
     Indication: MIGRAINE
     Route: 048
     Dates: start: 20020101, end: 20060101
  7. SEROQUEL [Suspect]
     Route: 048
     Dates: start: 20031030
  8. TRAMADOL HCL [Concomitant]
     Dates: start: 20030619
  9. METHOCARBAMOL [Concomitant]
     Dates: start: 20040805
  10. OXYCODONE AND ACETAMINOPHEN [Concomitant]
     Dates: start: 20040915
  11. CELEXA [Concomitant]
     Indication: ANXIETY
     Dates: start: 20060101
  12. AMITRIPTYLINE HCL [Concomitant]
     Dates: start: 20030903
  13. METHYLPREDNISOLONE [Concomitant]
     Dates: start: 20040219
  14. NAPROXEN SODIUM [Concomitant]
     Dates: start: 20040701
  15. NADOLOL [Concomitant]
     Indication: MIGRAINE PROPHYLAXIS
     Dates: start: 20060101
  16. DEMULEN 1/35-21 [Concomitant]
     Dates: start: 20060101

REACTIONS (8)
  - BLOOD TRIGLYCERIDES INCREASED [None]
  - TYPE 2 DIABETES MELLITUS [None]
  - DIABETES MELLITUS [None]
  - OBESITY [None]
  - IMPAIRED FASTING GLUCOSE [None]
  - HYPERLIPIDAEMIA [None]
  - BLOOD CHOLESTEROL INCREASED [None]
  - INSULIN RESISTANCE [None]
